FAERS Safety Report 12744397 (Version 1)
Quarter: 2016Q3

REPORT INFORMATION
  Report Type: Spontaneous
  Country: US (occurrence: US)
  Receive Date: 20160914
  Receipt Date: 20160914
  Transmission Date: 20161109
  Serious: No
  Sender: FDA-Public Use
  Company Number: US-JAZZ-2016-US-009242

PATIENT
  Sex: Female

DRUGS (19)
  1. XYREM [Suspect]
     Active Substance: SODIUM OXYBATE
     Dosage: 3.75 G, BID
     Route: 048
     Dates: start: 201605
  2. VITAMIN D3 [Concomitant]
     Active Substance: CHOLECALCIFEROL
  3. INDOMETHACIN. [Concomitant]
     Active Substance: INDOMETHACIN
  4. MULTIVITAMINS [Concomitant]
     Active Substance: VITAMINS
  5. NAMENDA [Concomitant]
     Active Substance: MEMANTINE HYDROCHLORIDE
  6. TIZANIDINE HCL [Concomitant]
     Active Substance: TIZANIDINE HYDROCHLORIDE
  7. VITAMIN E [Concomitant]
     Active Substance: .ALPHA.-TOCOPHEROL
  8. XYREM [Suspect]
     Active Substance: SODIUM OXYBATE
     Indication: NARCOLEPSY
     Dosage: 2.25 G, BID
     Route: 048
     Dates: start: 201604, end: 201605
  9. XYREM [Suspect]
     Active Substance: SODIUM OXYBATE
     Dosage: 3 G, BID
     Route: 048
     Dates: start: 201605, end: 201605
  10. DULOXETINE HCL [Concomitant]
     Active Substance: DULOXETINE HYDROCHLORIDE
  11. MAGNESIUM OXIDE. [Concomitant]
     Active Substance: MAGNESIUM OXIDE
  12. NYSTATIN W/TRIAMCINOLONE [Concomitant]
  13. GABAPENTIN. [Concomitant]
     Active Substance: GABAPENTIN
  14. LEVOTHYROXINE. [Concomitant]
     Active Substance: LEVOTHYROXINE
  15. NAPROXEN. [Concomitant]
     Active Substance: NAPROXEN
  16. CLONIDINE HCL [Concomitant]
     Active Substance: CLONIDINE HYDROCHLORIDE
  17. DEXILANT [Concomitant]
     Active Substance: DEXLANSOPRAZOLE
  18. DRONABINOL. [Concomitant]
     Active Substance: DRONABINOL
  19. XANAX [Concomitant]
     Active Substance: ALPRAZOLAM

REACTIONS (1)
  - Rash [Unknown]

NARRATIVE: CASE EVENT DATE: 2016
